FAERS Safety Report 5139445-3 (Version None)
Quarter: 2006Q4

REPORT INFORMATION
  Report Type: 
  Country: None (occurrence: None)
  Receive Date: 20061026
  Receipt Date: 20061026
  Transmission Date: 20070319
  Serious: Yes (Hospitalization)
  Sender: FDA-Public Use
  Company Number: None

PATIENT
  Sex: Female
  Weight: 73.0291 kg

DRUGS (2)
  1. RYTHMOL [Suspect]
     Indication: ATRIAL FIBRILLATION
     Dosage: 325 MG 2X DAILY BY MOUTH
     Route: 048
     Dates: start: 20051101
  2. POTASSIUM ACETATE [Concomitant]

REACTIONS (1)
  - HEART RATE IRREGULAR [None]
